FAERS Safety Report 9215363 (Version 2)
Quarter: 2013Q2

REPORT INFORMATION
  Report Type: Spontaneous
  Country: US (occurrence: US)
  Receive Date: 20130405
  Receipt Date: 20130517
  Transmission Date: 20140414
  Serious: No
  Sender: FDA-Public Use
  Company Number: US-009507513-1304USA001869

PATIENT
  Age: 30 Year
  Sex: Female

DRUGS (2)
  1. SAPHRIS [Suspect]
     Indication: BIPOLAR I DISORDER
     Dosage: 20 MG, ONCE DAILY AT NIGHT
     Route: 060
     Dates: start: 2013
  2. SAPHRIS [Suspect]
     Dosage: 10 MG, NIGHT ONCE DAILY
     Route: 060
     Dates: start: 201303

REACTIONS (3)
  - Galactorrhoea [Recovering/Resolving]
  - Galactorrhoea [Unknown]
  - Inappropriate schedule of drug administration [Unknown]
